FAERS Safety Report 17180159 (Version 1)
Quarter: 2019Q4

REPORT INFORMATION
  Report Type: Spontaneous
  Country: GB (occurrence: GB)
  Receive Date: 20191219
  Receipt Date: 20191219
  Transmission Date: 20200122
  Serious: Yes (Death, Hospitalization)
  Sender: FDA-Public Use
  Company Number: GB-MYLANLABS-2019M1123952

PATIENT
  Age: 62 Year
  Sex: Male

DRUGS (7)
  1. PREDNISOLONE. [Suspect]
     Active Substance: PREDNISOLONE
     Dosage: TAKING GREATER THAN THE PRESCRIBED DOSE FOR APPROXIMATELY 2 MONTHS PRIOR TO ADMISSION.
     Route: 065
  2. TENOFOVIR [Concomitant]
     Active Substance: TENOFOVIR
     Route: 065
  3. ALLOPURINOL. [Concomitant]
     Active Substance: ALLOPURINOL
     Dosage: 100 MILLIGRAM, QD
     Route: 065
  4. GANCICLOVIR. [Suspect]
     Active Substance: GANCICLOVIR
     Indication: CYTOMEGALOVIRUS INFECTION
     Dosage: 375 MILLIGRAM, BID
     Route: 042
  5. AZATHIOPRINE. [Suspect]
     Active Substance: AZATHIOPRINE
     Indication: IMMUNOSUPPRESSANT DRUG THERAPY
     Dosage: 150 MILLIGRAM, QD
     Route: 065
  6. PREDNISOLONE. [Suspect]
     Active Substance: PREDNISOLONE
     Indication: IMMUNOSUPPRESSANT DRUG THERAPY
     Dosage: RECEIVING FOR }15 YEARS
     Route: 065
  7. ASACOL [Concomitant]
     Active Substance: MESALAMINE
     Dosage: 2 MILLIGRAM, QD
     Route: 065

REACTIONS (3)
  - Haemophagocytic lymphohistiocytosis [Fatal]
  - Histoplasmosis disseminated [Fatal]
  - Cytomegalovirus infection [Fatal]
